FAERS Safety Report 4323088-5 (Version None)
Quarter: 2004Q1

REPORT INFORMATION
  Report Type: 
  Country: None (occurrence: None)
  Receive Date: 20040322
  Receipt Date: 20040310
  Transmission Date: 20041129
  Serious: Yes (Hospitalization, Disabling)
  Sender: FDA-Public Use
  Company Number: 2004017219

PATIENT
  Sex: Male

DRUGS (3)
  1. LIPITOR [Suspect]
     Indication: ILL-DEFINED DISORDER
     Dosage: UNKNOWN (UNKNOWN) UNKNOWN
     Route: 065
  2. METOPROLOL [Concomitant]
  3. ALL OTHER THERAPEUTIC PRDUCTS [Concomitant]

REACTIONS (3)
  - CARDIAC DISORDER [None]
  - EMPHYSEMA [None]
  - IMPAIRED WORK ABILITY [None]
